FAERS Safety Report 16979656 (Version 2)
Quarter: 2020Q1

REPORT INFORMATION
  Report Type: Spontaneous
  Country: None (occurrence: GB)
  Receive Date: 20191031
  Receipt Date: 20200103
  Transmission Date: 20200409
  Serious: Yes (Other)
  Sender: FDA-Public Use
  Company Number: GB-ASCEND THERAPEUTICS US, LLC-2076265

PATIENT
  Age: 18 Year
  Sex: Female

DRUGS (2)
  1. ESTRADIOL, NOS (ESTRADIOL) (TRANSDERMAL PATCH) UNKNOWN?INDICATION FOR [Suspect]
     Active Substance: ESTRADIOL
     Route: 062
  2. ESTROGEL [Suspect]
     Active Substance: ESTRADIOL
     Indication: OVARIAN FAILURE

REACTIONS (1)
  - Skin reaction [Unknown]
